FAERS Safety Report 21005114 (Version 1)
Quarter: 2022Q2

REPORT INFORMATION
  Report Type: Spontaneous
  Country: US (occurrence: None)
  Receive Date: 20220624
  Receipt Date: 20220624
  Transmission Date: 20220720
  Serious: No
  Sender: FDA-Public Use
  Company Number: None

PATIENT
  Age: 77 Year
  Sex: Female
  Weight: 77.11 kg

DRUGS (12)
  1. IBRANCE [Suspect]
     Active Substance: PALBOCICLIB
     Indication: Breast cancer female
     Dosage: OTHER FREQUENCY : 21D ON 7D OFF;?
     Route: 048
  2. LETROZOLE [Suspect]
     Active Substance: LETROZOLE
     Indication: Breast cancer female
     Dosage: FREQUENCY : DAILY;?
     Route: 048
  3. AMLODIPINE [Concomitant]
     Active Substance: AMLODIPINE BESYLATE
  4. LEXAPRO [Concomitant]
     Active Substance: ESCITALOPRAM OXALATE
  5. LYSINE [Concomitant]
     Active Substance: LYSINE
  6. METRONIDAZOLE [Concomitant]
     Active Substance: METRONIDAZOLE
  7. PRAVASTATIN [Concomitant]
     Active Substance: PRAVASTATIN
  8. PREVIDENT [Concomitant]
     Active Substance: SODIUM FLUORIDE
  9. QUINAPRIL [Concomitant]
     Active Substance: QUINAPRIL
  10. VITAMIN C [Concomitant]
     Active Substance: ASCORBIC ACID
  11. VITAMIN D3 [Concomitant]
     Active Substance: CHOLECALCIFEROL
  12. XARELTO [Concomitant]
     Active Substance: RIVAROXABAN

REACTIONS (1)
  - COVID-19 [None]
